FAERS Safety Report 8830644 (Version 3)
Quarter: 2013Q1

REPORT INFORMATION
  Report Type: Spontaneous
  Country: US (occurrence: US)
  Receive Date: 20121009
  Receipt Date: 20130304
  Transmission Date: 20140127
  Serious: Yes (Other)
  Sender: FDA-Public Use
  Company Number: US-BAYER-2012-103370

PATIENT
  Age: 41 Year
  Sex: Female
  Weight: 68.03 kg

DRUGS (9)
  1. BETASERON [Suspect]
     Indication: MULTIPLE SCLEROSIS
     Dosage: UNK
     Dates: start: 1998, end: 2011
  2. BRIMONIDINE TARTRATE W/TIMOLOL [Concomitant]
     Dosage: 1 GTT INTO BOTH EYE
  3. AZOPT [Concomitant]
     Dosage: 1 GTT INTO BOTH EYES BID
  4. DOXYCYCLINE [Concomitant]
     Dosage: 100 MG, UNK
  5. GLATIRAMER [Concomitant]
     Dosage: 20 MG/ML
     Route: 058
  6. OXCARBAZEPINE [Concomitant]
     Dosage: 600 MG, UNK
     Route: 048
  7. RISPERIDONE [Concomitant]
     Dosage: 1 MG, UNK
  8. SEROQUEL [Concomitant]
     Dosage: 400 MG, UNK
  9. TRAVOPROST [Concomitant]
     Dosage: 1 GTT IN BOTH EYE

REACTIONS (1)
  - Hepatic enzyme increased [Recovered/Resolved]
